FAERS Safety Report 9638046 (Version 7)
Quarter: 2014Q2

REPORT INFORMATION
  Report Type: Report from Study
  Country: US (occurrence: US)
  Receive Date: 20131022
  Receipt Date: 20140623
  Transmission Date: 20141212
  Serious: Yes (Death, Hospitalization)
  Sender: FDA-Public Use
  Company Number: US-ACTELION-A-US2013-89832

PATIENT
  Age: 58 Year
  Sex: Male

DRUGS (4)
  1. TRACLEER [Suspect]
     Indication: PULMONARY ARTERIAL HYPERTENSION
     Dosage: UNK
     Route: 048
  2. VELETRI [Suspect]
     Indication: PULMONARY ARTERIAL HYPERTENSION
     Dosage: 30 NG/KG, PER MIN
     Route: 042
     Dates: start: 201106
  3. ADCIRCA [Concomitant]
  4. RIOCIGUAT [Concomitant]

REACTIONS (16)
  - Death [Fatal]
  - Brain injury [Unknown]
  - Head injury [Unknown]
  - Fall [Unknown]
  - Pulmonary arterial hypertension [Unknown]
  - Dizziness [Unknown]
  - Limb injury [Unknown]
  - Dyspnoea exertional [Unknown]
  - Oedema peripheral [Unknown]
  - Blood glucose decreased [Unknown]
  - Contusion [Unknown]
  - Pain [Unknown]
  - Ligament sprain [Unknown]
  - Muscle strain [Unknown]
  - Haematoma [Unknown]
  - Diarrhoea [Unknown]
